FAERS Safety Report 8462278-7 (Version None)
Quarter: 2012Q2

REPORT INFORMATION
  Report Type: 
  Country: None (occurrence: None)
  Receive Date: 20120625
  Receipt Date: 20120611
  Transmission Date: 20120825
  Serious: Yes (Death, Hospitalization, Other)
  Sender: FDA-Public Use
  Company Number: FR-CELGENEUS-056-21880-12010151

PATIENT
  Age: 79 Year
  Sex: Female

DRUGS (9)
  1. REVLIMID [Suspect]
     Dosage: 20 MILLIGRAM
     Route: 048
     Dates: start: 20110617, end: 20110901
  2. REVLIMID [Suspect]
     Indication: MULTIPLE MYELOMA
     Dosage: 15 MILLIGRAM
     Route: 048
     Dates: start: 20110520
  3. ZOMETA [Concomitant]
     Route: 065
     Dates: start: 20110905, end: 20110905
  4. ZOMETA [Concomitant]
     Route: 065
     Dates: start: 20110616, end: 20110616
  5. REVLIMID [Suspect]
     Dosage: 10 MILLIGRAM
     Route: 048
     Dates: start: 20110901, end: 20120116
  6. MEDROL [Concomitant]
     Route: 065
     Dates: start: 20110501, end: 20120116
  7. ZOMETA [Concomitant]
     Route: 065
     Dates: start: 20110506, end: 20110506
  8. BACTRIM [Concomitant]
     Indication: PROPHYLAXIS
     Route: 065
     Dates: start: 20110501, end: 20120201
  9. VALACYCLOVIR HYDROCHLORIDE [Concomitant]
     Indication: PROPHYLAXIS
     Route: 065
     Dates: start: 20110501, end: 20120201

REACTIONS (1)
  - DIFFUSE LARGE B-CELL LYMPHOMA [None]
